FAERS Safety Report 4600527-3 (Version None)
Quarter: 2005Q1

REPORT INFORMATION
  Report Type: 
  Country: None (occurrence: None)
  Receive Date: 20050304
  Receipt Date: 20050219
  Transmission Date: 20050727
  Serious: Yes (Other)
  Sender: FDA-Public Use
  Company Number: 2004092442

PATIENT
  Age: 16 Year
  Sex: Female
  Weight: 86.1834 kg

DRUGS (4)
  1. GEODON [Suspect]
     Indication: OBSESSIVE-COMPULSIVE DISORDER
     Dosage: (2 IN 1 D), ORAL
     Route: 048
  2. GEODON [Suspect]
     Indication: PSYCHOTIC DISORDER
     Dosage: (2 IN 1 D), ORAL
     Route: 048
  3. METHYLPHENIDATE HCL [Concomitant]
  4. ESCITALOPRAM (ESCITALOPRAM) [Concomitant]

REACTIONS (4)
  - HEART RATE IRREGULAR [None]
  - PALPITATIONS [None]
  - WEIGHT DECREASED [None]
  - WEIGHT INCREASED [None]
